FAERS Safety Report 13351550 (Version 1)
Quarter: 2017Q1

REPORT INFORMATION
  Report Type: Spontaneous
  Country: US (occurrence: US)
  Receive Date: 20170320
  Receipt Date: 20170320
  Transmission Date: 20170429
  Serious: Yes (Hospitalization, Other)
  Sender: FDA-Public Use
  Company Number: US-INDIVIOR LIMITED-INDV-099712-2017

PATIENT
  Age: 58 Year
  Sex: Male

DRUGS (2)
  1. SUBOXONE [Suspect]
     Active Substance: BUPRENORPHINE HYDROCHLORIDE\NALOXONE HYDROCHLORIDE
     Indication: PAIN
     Dosage: 12 MG TOTAL DOSE, 4 MG INTO HALVES, TAKES 6 TIMES A DAY
     Route: 065
     Dates: start: 201611
  2. SUBOXONE [Suspect]
     Active Substance: BUPRENORPHINE HYDROCHLORIDE\NALOXONE HYDROCHLORIDE
     Dosage: DOSE DECREASED TO 6 MG PER DAY
     Route: 065

REACTIONS (6)
  - Product use issue [Recovered/Resolved]
  - Somatic delusion [Unknown]
  - Off label use [Unknown]
  - Fall [Recovered/Resolved]
  - Hip fracture [Unknown]
  - Product preparation error [Unknown]

NARRATIVE: CASE EVENT DATE: 201611
